FAERS Safety Report 15241454 (Version 1)
Quarter: 2018Q3

REPORT INFORMATION
  Report Type: Spontaneous
  Country: US (occurrence: US)
  Receive Date: 20180805
  Receipt Date: 20180805
  Transmission Date: 20181010
  Serious: Yes (Other)
  Sender: FDA-Public Use
  Company Number: US-JNJFOC-20180732318

PATIENT
  Age: 24 Year
  Sex: Female

DRUGS (5)
  1. MIRENA [Suspect]
     Active Substance: LEVONORGESTREL
     Indication: MENORRHAGIA
     Route: 015
     Dates: start: 20180306, end: 20180406
  2. LEVONORGESTREL. [Suspect]
     Active Substance: LEVONORGESTREL
     Indication: CONTRACEPTION
     Route: 065
  3. XARELTO [Suspect]
     Active Substance: RIVAROXABAN
     Indication: DEEP VEIN THROMBOSIS
     Route: 048
     Dates: start: 201802, end: 20180417
  4. MIRENA [Suspect]
     Active Substance: LEVONORGESTREL
     Indication: CONTRACEPTION
     Route: 015
     Dates: start: 20180306, end: 20180406
  5. LEVONORGESTREL. [Suspect]
     Active Substance: LEVONORGESTREL
     Indication: MENORRHAGIA
     Route: 065

REACTIONS (6)
  - Menorrhagia [Unknown]
  - Dizziness [Unknown]
  - Anaemia [Unknown]
  - Device expulsion [Unknown]
  - Syncope [Unknown]
  - Genital haemorrhage [Unknown]

NARRATIVE: CASE EVENT DATE: 2018
